FAERS Safety Report 4576828-4 (Version None)
Quarter: 2005Q1

REPORT INFORMATION
  Report Type: 
  Country: None (occurrence: None)
  Receive Date: 20050210
  Receipt Date: 20050131
  Transmission Date: 20050727
  Serious: Yes (Other)
  Sender: FDA-Public Use
  Company Number: US-AMGEN-KDL108271

PATIENT
  Age: 67 Year
  Sex: Female
  Weight: 49.5 kg

DRUGS (5)
  1. PROCRIT [Suspect]
     Indication: ANAEMIA
     Route: 058
     Dates: start: 20040917, end: 20041001
  2. FERRLECIT FOR INJECTION [Concomitant]
     Route: 042
     Dates: start: 20040923, end: 20040923
  3. PHENOBARBITAL [Concomitant]
  4. SYNTHROID [Concomitant]
  5. VITAMIN B-12 [Concomitant]

REACTIONS (7)
  - DYSPNOEA [None]
  - HYPERSENSITIVITY [None]
  - HYPOTENSION [None]
  - INFUSION RELATED REACTION [None]
  - INJECTION SITE PRURITUS [None]
  - INJECTION SITE URTICARIA [None]
  - WEIGHT DECREASED [None]
